FAERS Safety Report 22013314 (Version 2)
Quarter: 2023Q1

REPORT INFORMATION
  Report Type: Spontaneous
  Country: US (occurrence: US)
  Receive Date: 20230220
  Receipt Date: 20230302
  Transmission Date: 20230417
  Serious: No
  Sender: FDA-Public Use
  Company Number: US-LUNDBECK-DKLU3058214

PATIENT
  Age: 52 Year
  Sex: Female
  Weight: 68.946 kg

DRUGS (1)
  1. VYEPTI [Suspect]
     Active Substance: EPTINEZUMAB-JJMR
     Indication: Migraine prophylaxis
     Dosage: 100MG/ML
     Route: 041
     Dates: start: 20221128

REACTIONS (3)
  - Fatigue [Unknown]
  - Anxiety [Unknown]
  - Condition aggravated [Unknown]
